FAERS Safety Report 10357983 (Version 2)
Quarter: 2014Q3

REPORT INFORMATION
  Report Type: Report from Study
  Country: US (occurrence: US)
  Receive Date: 20140801
  Receipt Date: 20140924
  Transmission Date: 20150326
  Serious: Yes (Hospitalization, Other)
  Sender: FDA-Public Use
  Company Number: US-SA-2014SA100175

PATIENT
  Age: 69 Year
  Sex: Female

DRUGS (2)
  1. ESTROGEN NOS [Concomitant]
     Active Substance: ESTROGENS
  2. AUBAGIO [Suspect]
     Active Substance: TERIFLUNOMIDE
     Indication: MULTIPLE SCLEROSIS
     Route: 048
     Dates: start: 20140522

REACTIONS (9)
  - Fall [Unknown]
  - Loss of consciousness [Recovered/Resolved]
  - Alopecia [Unknown]
  - Asthenia [Unknown]
  - Blood phosphorus decreased [Unknown]
  - Headache [Recovered/Resolved]
  - Anaemia [Unknown]
  - Back pain [Unknown]
  - Muscular weakness [Unknown]

NARRATIVE: CASE EVENT DATE: 201407
